FAERS Safety Report 23795974 (Version 1)
Quarter: 2024Q2

REPORT INFORMATION
  Report Type: Other
  Country: CA (occurrence: CA)
  Receive Date: 20240429
  Receipt Date: 20240429
  Transmission Date: 20240716
  Serious: Yes (Death, Other)
  Sender: FDA-Public Use
  Company Number: CA-APOTEX-2024AP005085

PATIENT
  Age: 81 Year
  Sex: Male

DRUGS (1)
  1. TENOFOVIR [Suspect]
     Active Substance: TENOFOVIR
     Indication: Chronic hepatitis B
     Dosage: 300 MILLIGRAM, QD
     Route: 048

REACTIONS (1)
  - Death [Fatal]
